FAERS Safety Report 5214761-5 (Version None)
Quarter: 2007Q1

REPORT INFORMATION
  Report Type: 
  Country: None (occurrence: None)
  Receive Date: 20070117
  Receipt Date: 20070115
  Transmission Date: 20070707
  Serious: Yes (Hospitalization, Congenital Anomaly)
  Sender: FDA-Public Use
  Company Number: LTI2006A00273

PATIENT
  Age: 1 Day
  Sex: Male

DRUGS (3)
  1. LANSOPRAZOLE [Suspect]
     Indication: RHEUMATOID ARTHRITIS
     Dates: end: 20060110
  2. SULFASALAZINE [Suspect]
     Indication: RHEUMATOID ARTHRITIS
  3. VOLTAREN [Suspect]
     Indication: RHEUMATOID ARTHRITIS
     Dates: end: 20060110

REACTIONS (8)
  - CONGENITAL GENITOURINARY ABNORMALITY [None]
  - CONGENITAL RENAL CYST [None]
  - DRUG EXPOSURE DURING PREGNANCY [None]
  - FEEDING DISORDER NEONATAL [None]
  - JAUNDICE NEONATAL [None]
  - PENIS DISORDER [None]
  - URETERIC STENOSIS [None]
  - WEIGHT DECREASED [None]
